FAERS Safety Report 7456354-5 (Version None)
Quarter: 2011Q1

REPORT INFORMATION
  Report Type: 
  Country: None (occurrence: None)
  Receive Date: 20110302
  Receipt Date: 20101130
  Transmission Date: 20110831
  Serious: Yes (Hospitalization)
  Sender: FDA-Public Use
  Company Number: 022330

PATIENT
  Sex: Male
  Weight: 54.4 kg

DRUGS (4)
  1. CIMZIA [Suspect]
     Indication: CROHN'S DISEASE
     Dosage: 200 MG 1X/2 WEEKS SUBCUTANEOUS, 200 MG 1X/2 WEEKS SUBCUTANEOUS
     Route: 058
     Dates: start: 20101130
  2. CIMZIA [Suspect]
     Indication: CROHN'S DISEASE
     Dosage: 200 MG 1X/2 WEEKS SUBCUTANEOUS, 200 MG 1X/2 WEEKS SUBCUTANEOUS
     Route: 058
     Dates: start: 20100608, end: 20101116
  3. RANITIDINE [Concomitant]
  4. LORTAB [Concomitant]

REACTIONS (4)
  - NASOPHARYNGITIS [None]
  - ABDOMINAL PAIN [None]
  - DRUG DOSE OMISSION [None]
  - PYREXIA [None]
